FAERS Safety Report 20221605 (Version 1)
Quarter: 2021Q4

REPORT INFORMATION
  Report Type: Spontaneous
  Country: DE (occurrence: DE)
  Receive Date: 20211223
  Receipt Date: 20211223
  Transmission Date: 20220303
  Serious: Yes (Hospitalization, Other)
  Sender: FDA-Public Use
  Company Number: None

PATIENT
  Age: 83 Year
  Sex: Female
  Weight: 69 kg

DRUGS (25)
  1. FENTANYL [Suspect]
     Active Substance: FENTANYL
     Indication: Scoliosis
     Dosage: START DATE 19/NOV/2021
     Route: 062
  2. FENTANYL [Suspect]
     Active Substance: FENTANYL
     Route: 062
     Dates: end: 202111
  3. CITALOPRAM [Suspect]
     Active Substance: CITALOPRAM HYDROBROMIDE
     Indication: Depression
     Route: 048
  4. CITALOPRAM [Suspect]
     Active Substance: CITALOPRAM HYDROBROMIDE
     Dosage: START DATE 19/NOV/2021
     Route: 048
  5. MIRTAZAPINE [Suspect]
     Active Substance: MIRTAZAPINE
     Indication: Depression
     Dosage: 0-0-0-2FROM NOVEMBER 2021 INCREASED TO 45MG AT NIGHT
     Route: 048
     Dates: end: 202111
  6. MIRTAZAPINE [Suspect]
     Active Substance: MIRTAZAPINE
     Dosage: START DATE 19/NOV/2021
     Route: 048
  7. QUETIAPINE [Suspect]
     Active Substance: QUETIAPINE
     Indication: Depression
     Dosage: START DATE 19/NOV/2021
     Route: 048
     Dates: end: 20211119
  8. FUROSEMIDE [Concomitant]
     Active Substance: FUROSEMIDE
     Dosage: FOR EDEMA IN THE LEGS TAKE AN ADDITIONAL 1/2 TABLET
     Route: 065
  9. ALENDRONIC ACID [Concomitant]
     Active Substance: ALENDRONIC ACID
     Dosage: 1X A WEEK SATURDAYS
     Route: 065
  10. CLOPIDOGREL [Concomitant]
     Active Substance: CLOPIDOGREL BISULFATE
     Indication: Coronary artery disease
     Route: 048
     Dates: start: 202106
  11. CLOPIDOGREL [Concomitant]
     Active Substance: CLOPIDOGREL BISULFATE
     Indication: Coronary arterial stent insertion
  12. PANTOPRAZOLE [Concomitant]
     Active Substance: PANTOPRAZOLE
     Route: 065
     Dates: end: 202111
  13. PANTOPRAZOLE [Concomitant]
     Active Substance: PANTOPRAZOLE
     Route: 065
     Dates: end: 202112
  14. BRIMONIDINE [Concomitant]
     Active Substance: BRIMONIDINE TARTRATE
     Route: 065
  15. NITROGLYCERIN [Concomitant]
     Active Substance: NITROGLYCERIN
     Indication: Chest discomfort
     Route: 065
  16. NITROGLYCERIN [Concomitant]
     Active Substance: NITROGLYCERIN
     Indication: Prophylaxis
  17. AMLODIPIN/VALSARTAN AL [Concomitant]
     Route: 065
  18. CHOLECALCIFEROL [Concomitant]
     Active Substance: CHOLECALCIFEROL
     Route: 065
  19. NEBIVOLOL [Concomitant]
     Active Substance: NEBIVOLOL
     Indication: Coronary arterial stent insertion
     Route: 065
  20. TIMOLOL MALEATE\TRAVOPROST [Concomitant]
     Active Substance: TIMOLOL MALEATE\TRAVOPROST
  21. ATORVASTATIN [Concomitant]
     Active Substance: ATORVASTATIN
     Route: 065
  22. BRINZO VISION [Concomitant]
     Route: 065
  23. IODINE [Concomitant]
     Active Substance: IODINE
     Route: 065
  24. POTASSIUM CHLORIDE [Concomitant]
     Active Substance: POTASSIUM CHLORIDE
     Route: 065
  25. ASPIRIN [Concomitant]
     Active Substance: ASPIRIN
     Route: 065

REACTIONS (16)
  - Cholestasis [Recovering/Resolving]
  - Cholestasis [Recovering/Resolving]
  - Hepatocellular injury [Recovering/Resolving]
  - Blood pressure fluctuation [Recovering/Resolving]
  - Chills [Recovering/Resolving]
  - Gait disturbance [Recovering/Resolving]
  - Dry eye [Recovering/Resolving]
  - Urinary tract infection [Recovering/Resolving]
  - Hypotonia [Recovering/Resolving]
  - General physical health deterioration [Recovering/Resolving]
  - Constipation [Recovering/Resolving]
  - Weight decreased [Recovering/Resolving]
  - Decreased appetite [Recovering/Resolving]
  - Dry mouth [Recovering/Resolving]
  - Feeling cold [Recovering/Resolving]
  - Night sweats [Not Recovered/Not Resolved]

NARRATIVE: CASE EVENT DATE: 20210101
